FAERS Safety Report 8379131-X (Version None)
Quarter: 2012Q1

REPORT INFORMATION
  Report Type: 
  Country: None (occurrence: None)
  Receive Date: 20120323
  Receipt Date: 20110317
  Transmission Date: 20120608
  Serious: Yes (Hospitalization, Other)
  Sender: FDA-Public Use
  Company Number: 163-21880-11032125

PATIENT
  Age: 67 Year
  Sex: Male
  Weight: 74.8435 kg

DRUGS (10)
  1. LISINOPRIL [Concomitant]
  2. DOXYCYCLINE [Concomitant]
  3. FLUOXETINE [Concomitant]
  4. AMBIEN [Concomitant]
  5. VERAPAMIL [Concomitant]
  6. DEXAMETHASONE [Concomitant]
  7. MIRTAZAPINE [Concomitant]
  8. REVLIMID [Suspect]
     Indication: MULTIPLE MYELOMA
     Dosage: 15 MG, 21/7, PO
     Route: 048
     Dates: start: 20101130
  9. ACETAMINOPHEN [Concomitant]
  10. HYDROCODONE BITARTRATE [Concomitant]

REACTIONS (4)
  - DEHYDRATION [None]
  - VIRAL INFECTION [None]
  - DIARRHOEA [None]
  - KIDNEY INFECTION [None]
